FAERS Safety Report 4271476-8 (Version None)
Quarter: 2004Q1

REPORT INFORMATION
  Report Type: 
  Country: None (occurrence: None)
  Receive Date: 20040114
  Receipt Date: 20040114
  Transmission Date: 20041129
  Serious: Yes (Hospitalization)
  Sender: FDA-Public Use
  Company Number: None

PATIENT
  Age: 80 Year
  Sex: Male
  Weight: 85.7 kg

DRUGS (8)
  1. DILANTIN [Suspect]
     Indication: CONVULSION
     Dosage: 500 MG Q 12 H ORAL
     Route: 048
     Dates: start: 20030909, end: 20030917
  2. ALBUTEROL SO4 [Concomitant]
  3. IPRATROPIUM BROMIDE [Concomitant]
  4. ACETAMINOPHEN [Concomitant]
  5. ALC-F LIQUID [Concomitant]
  6. LEVOFLOXACIN [Concomitant]
  7. MILK OF MAGNESIA TAB [Concomitant]
  8. POTASSIUM CHLORIDE [Concomitant]

REACTIONS (3)
  - DRUG TOXICITY [None]
  - LETHARGY [None]
  - MENTAL STATUS CHANGES [None]
